FAERS Safety Report 6308272-3 (Version None)
Quarter: 2009Q3

REPORT INFORMATION
  Report Type: 
  Country: None (occurrence: None)
  Receive Date: 20090813
  Receipt Date: 20090804
  Transmission Date: 20100115
  Serious: Yes (Death, Hospitalization)
  Sender: FDA-Public Use
  Company Number: PH-BAXTER-2009BH012439

PATIENT
  Age: 15 Year
  Sex: Female

DRUGS (4)
  1. DIANEAL [Suspect]
     Indication: PERITONEAL DIALYSIS
     Route: 033
     Dates: start: 20070630, end: 20090713
  2. CALCIUM CARBONATE [Concomitant]
     Indication: DRUG USE FOR UNKNOWN INDICATION
     Route: 065
     Dates: end: 20090713
  3. FOLIC ACID [Concomitant]
     Indication: DRUG USE FOR UNKNOWN INDICATION
     Route: 065
     Dates: end: 20090713
  4. SODIUM BICARBONATE [Concomitant]
     Indication: DRUG USE FOR UNKNOWN INDICATION
     Route: 065
     Dates: end: 20090713

REACTIONS (4)
  - ASTHENIA [None]
  - CARDIAC ARREST [None]
  - DYSPNOEA [None]
  - RENAL FAILURE CHRONIC [None]
